FAERS Safety Report 5051264-5 (Version None)
Quarter: 2006Q2

REPORT INFORMATION
  Report Type: 
  Country: None (occurrence: None)
  Receive Date: 20060614
  Receipt Date: 20060327
  Transmission Date: 20061013
  Serious: Yes (Other)
  Sender: FDA-Public Use
  Company Number: 442213

PATIENT
  Age: 59 Year
  Sex: Female

DRUGS (3)
  1. BONIVA [Suspect]
     Indication: OSTEOPOROSIS
     Dosage: 1 PER MONTH   ORAL
     Route: 048
     Dates: start: 20060215, end: 20060313
  2. SYNTHROID [Concomitant]
  3. PRAVACHOL [Concomitant]

REACTIONS (4)
  - CHEST PAIN [None]
  - DYSPHAGIA [None]
  - MUSCLE TIGHTNESS [None]
  - VISION BLURRED [None]
